FAERS Safety Report 17188918 (Version 1)
Quarter: 2019Q4

REPORT INFORMATION
  Report Type: Report from Study
  Country: DE (occurrence: DE)
  Receive Date: 20191222
  Receipt Date: 20191222
  Transmission Date: 20200122
  Serious: Yes (Hospitalization)
  Sender: FDA-Public Use
  Company Number: DE-BIOGEN-2019BI00818607

PATIENT
  Sex: Female

DRUGS (1)
  1. TECFIDERA [Suspect]
     Active Substance: DIMETHYL FUMARATE
     Indication: MULTIPLE SCLEROSIS
     Dosage: MIANTENANCE DOSE
     Route: 048
     Dates: start: 20140711

REACTIONS (8)
  - Degenerative bone disease [Unknown]
  - Hemiparaesthesia [Not Recovered/Not Resolved]
  - Soft tissue atrophy [Unknown]
  - Delusion [Not Recovered/Not Resolved]
  - Muscle atrophy [Unknown]
  - Pain [Not Recovered/Not Resolved]
  - Feeling abnormal [Not Recovered/Not Resolved]
  - Dizziness [Not Recovered/Not Resolved]
